FAERS Safety Report 7389701-3 (Version None)
Quarter: 2011Q2

REPORT INFORMATION
  Report Type: 
  Country: None (occurrence: None)
  Receive Date: 20110401
  Receipt Date: 20110307
  Transmission Date: 20111010
  Serious: Yes (Hospitalization)
  Sender: FDA-Public Use
  Company Number: IR-MERCK-1103USA01158

PATIENT
  Age: 80 Year
  Sex: Male

DRUGS (2)
  1. MEVACOR [Suspect]
     Route: 048
  2. DILTIAZEM HYDROCHLORIDE [Interacting]
     Route: 065

REACTIONS (5)
  - HYPERKALAEMIA [None]
  - RHABDOMYOLYSIS [None]
  - BRADYARRHYTHMIA [None]
  - DRUG INTERACTION [None]
  - CIRCULATORY COLLAPSE [None]
